FAERS Safety Report 6764043-5 (Version None)
Quarter: 2010Q2

REPORT INFORMATION
  Report Type: 
  Country: None (occurrence: None)
  Receive Date: 20100608
  Receipt Date: 20100526
  Transmission Date: 20101027
  Serious: Yes (Hospitalization)
  Sender: FDA-Public Use
  Company Number: LTI2010A00107

PATIENT
  Age: 71 Year
  Sex: Male

DRUGS (13)
  1. LANSOPRAZOLE [Suspect]
     Dosage: 15 MG (15 MG, 1 IN 1 D) ORAL
     Route: 048
     Dates: end: 20091018
  2. ARIXTRA [Suspect]
     Dosage: 7.5 MG (7.5 MG, 1 IN 1 D)
     Dates: start: 20090814, end: 20091018
  3. KARDEGIC (ACETYLSALICYLATE LYSINE) [Suspect]
     Dosage: 160 MG ORAL, 75 MG ORAL
     Route: 048
     Dates: end: 20091018
  4. KARDEGIC (ACETYLSALICYLATE LYSINE) [Suspect]
     Dosage: 160 MG ORAL, 75 MG ORAL
     Route: 048
     Dates: start: 20091001
  5. IRBESARTAN [Suspect]
     Dosage: 150 MG (150 MG, 1 IN 1 D) ORAL
     Route: 048
     Dates: end: 20091018
  6. LYRICA [Suspect]
     Dosage: 300 MG (100 MG, 3 IN 1 D) ORAL
     Route: 048
     Dates: end: 20091018
  7. MIANSERIN (MIANSERIN) [Suspect]
     Dosage: 20 MG (10 MG, 2 IN 1 D) ORAL
     Route: 048
     Dates: end: 20091018
  8. ATORVASTATIN CALCIUM [Suspect]
     Dosage: 10 MG (10 MG, 1 IN 1 D) ORAL
     Route: 048
     Dates: end: 20091018
  9. TRAMADOL HCL [Suspect]
     Dosage: 200 MG (100 MG, 2 IN 1 D) ORAL
     Route: 048
     Dates: end: 20091018
  10. ATARAX [Suspect]
     Dosage: 25 MG (25 MG, 1 IN 1 D) ORAL
     Route: 048
     Dates: end: 20091018
  11. LANSOYL (PARAFFIN, LIQUID) [Concomitant]
  12. ACETAMINOPHEN [Concomitant]
  13. XANAX [Concomitant]

REACTIONS (9)
  - ANAEMIA [None]
  - DEHYDRATION [None]
  - DIALYSIS [None]
  - HYPOTENSION [None]
  - INTRA-ABDOMINAL HAEMATOMA [None]
  - MALAISE [None]
  - OXYGEN SATURATION DECREASED [None]
  - PYREXIA [None]
  - RENAL FAILURE ACUTE [None]
